FAERS Safety Report 4422130-0 (Version None)
Quarter: 2004Q3

REPORT INFORMATION
  Report Type: 
  Country: None (occurrence: None)
  Receive Date: 20040806
  Receipt Date: 20040726
  Transmission Date: 20050211
  Serious: No
  Sender: FDA-Public Use
  Company Number: US-JNJFOC-20040605329

PATIENT
  Age: 4 Year
  Sex: Male

DRUGS (1)
  1. MOTRIN [Suspect]
     Indication: PYREXIA
     Dates: start: 20040501

REACTIONS (5)
  - DRUG HYPERSENSITIVITY [None]
  - GRAND MAL CONVULSION [None]
  - PETIT MAL EPILEPSY [None]
  - PHARYNGITIS [None]
  - STREPTOCOCCAL INFECTION [None]
